FAERS Safety Report 14942318 (Version 2)
Quarter: 2018Q3

REPORT INFORMATION
  Report Type: Spontaneous
  Country: JP (occurrence: JP)
  Receive Date: 20180528
  Receipt Date: 20180713
  Transmission Date: 20181010
  Serious: Yes (Death, Life-Threatening, Other)
  Sender: FDA-Public Use
  Company Number: JP-ALXN-A201805885AA

PATIENT
  Age: 14 Year
  Sex: Female

DRUGS (6)
  1. SOLIRIS [Suspect]
     Active Substance: ECULIZUMAB
     Indication: OFF LABEL USE
  2. VICCILLIN                          /00000501/ [Concomitant]
     Indication: PROPHYLAXIS
     Dosage: 2 G, DAILY
     Route: 042
     Dates: start: 20180430, end: 20180513
  3. SOLIRIS [Suspect]
     Active Substance: ECULIZUMAB
     Indication: THROMBOTIC MICROANGIOPATHY
     Dosage: 900 MG, QW
     Route: 042
     Dates: start: 20180420, end: 20180504
  4. PERDIPINE [Concomitant]
     Active Substance: NICARDIPINE HYDROCHLORIDE
     Indication: THROMBOTIC MICROANGIOPATHY
     Dosage: UNK
     Route: 042
     Dates: start: 20180125, end: 20180513
  5. PROGRAF [Suspect]
     Active Substance: TACROLIMUS\TACROLIMUS ANHYDROUS
     Indication: PRODUCT USED FOR UNKNOWN INDICATION
     Dosage: UNK
     Route: 065
  6. METHYLPREDNISOLONE. [Concomitant]
     Active Substance: METHYLPREDNISOLONE
     Indication: THROMBOTIC MICROANGIOPATHY
     Dosage: 36 MG, DAILY
     Route: 042
     Dates: start: 20180330, end: 20180513

REACTIONS (6)
  - Pulmonary haemorrhage [Fatal]
  - Off label use [Unknown]
  - Drug ineffective [Unknown]
  - Thrombotic microangiopathy [Fatal]
  - Condition aggravated [Fatal]
  - Condition aggravated [Fatal]

NARRATIVE: CASE EVENT DATE: 20180509
